FAERS Safety Report 7593716-X (Version None)
Quarter: 2011Q3

REPORT INFORMATION
  Report Type: 
  Country: None (occurrence: None)
  Receive Date: 20110706
  Receipt Date: 20110622
  Transmission Date: 20111222
  Serious: Yes (Hospitalization)
  Sender: FDA-Public Use
  Company Number: PHHY2011IT56209

PATIENT
  Sex: Male

DRUGS (2)
  1. TEGRETOL [Suspect]
     Indication: EPILEPSY
     Dosage: 100 MG, DAILY
     Route: 048
     Dates: start: 20110518, end: 20110529
  2. DEPAKENE [Concomitant]
     Dosage: 250 MG, UNK

REACTIONS (1)
  - TREMOR [None]
